FAERS Safety Report 15936755 (Version 5)
Quarter: 2019Q1

REPORT INFORMATION
  Report Type: Spontaneous
  Country: DE (occurrence: DE)
  Receive Date: 20190208
  Receipt Date: 20190222
  Transmission Date: 20190417
  Serious: Yes (Death, Hospitalization, Other)
  Sender: FDA-Public Use
  Company Number: DE-009507513-1902DEU000451

PATIENT
  Age: 60 Year
  Sex: Female
  Weight: 53 kg

DRUGS (7)
  1. METHOTREXATE. [Concomitant]
     Active Substance: METHOTREXATE
     Indication: PROPHYLAXIS AGAINST GRAFT VERSUS HOST DISEASE
  2. RITUXIMAB. [Concomitant]
     Active Substance: RITUXIMAB
     Indication: EPSTEIN-BARR VIRUS INFECTION
     Dosage: THRICE WEEKLY
  3. RITUXIMAB. [Concomitant]
     Active Substance: RITUXIMAB
     Dosage: THRICE WEEKLY
     Dates: start: 20180209
  4. PREVYMIS [Suspect]
     Active Substance: LETERMOVIR
     Indication: ANTIVIRAL PROPHYLAXIS
     Dosage: 480 MILLIGRAM, QD
     Dates: start: 20180219, end: 20180504
  5. ACYCLOVIR. [Concomitant]
     Active Substance: ACYCLOVIR
     Indication: ORAL HERPES
  6. PREDNISOLONE. [Concomitant]
     Active Substance: PREDNISOLONE
     Dosage: 25 MILLIGRAM, QD
  7. RITUXIMAB. [Concomitant]
     Active Substance: RITUXIMAB
     Dosage: THRICE WEEKLY
     Dates: end: 20181028

REACTIONS (14)
  - Escherichia sepsis [Unknown]
  - Murphy^s sign positive [Unknown]
  - Pathogen resistance [Unknown]
  - General physical health deterioration [Unknown]
  - Brain oedema [Fatal]
  - Hypokalaemia [Unknown]
  - Visual impairment [Unknown]
  - Fatigue [Unknown]
  - Enterococcal sepsis [Unknown]
  - Pneumonia [Recovering/Resolving]
  - Pyrexia [Recovered/Resolved]
  - Post transplant lymphoproliferative disorder [Fatal]
  - Adverse event [Unknown]
  - Intracranial mass [Unknown]

NARRATIVE: CASE EVENT DATE: 2018
